FAERS Safety Report 13759139 (Version 1)
Quarter: 2017Q3

REPORT INFORMATION
  Report Type: Spontaneous
  Country: US (occurrence: US)
  Receive Date: 20170717
  Receipt Date: 20170717
  Transmission Date: 20171127
  Serious: Yes (Other)
  Sender: FDA-Public Use
  Company Number: US-MYLANLABS-2017M1040282

PATIENT

DRUGS (1)
  1. VANCOMYCIN [Suspect]
     Active Substance: VANCOMYCIN
     Indication: BACTERIAL TRACHEITIS
     Dosage: 2 COURSES; SECOND COURSE INFUSED OVER 2 HOURS
     Route: 050

REACTIONS (5)
  - Tachycardia [Unknown]
  - Red man syndrome [Unknown]
  - Rash erythematous [Unknown]
  - Pyrexia [Unknown]
  - Blood pressure systolic decreased [Unknown]
